FAERS Safety Report 23300294 (Version 1)
Quarter: 2023Q4

REPORT INFORMATION
  Report Type: Spontaneous
  Country: US (occurrence: US)
  Receive Date: 20231215
  Receipt Date: 20231215
  Transmission Date: 20240110
  Serious: No
  Sender: FDA-Public Use
  Company Number: US-AMGEN-USASP2023218833

PATIENT
  Age: 58 Year
  Sex: Female

DRUGS (8)
  1. ERENUMAB [Suspect]
     Active Substance: ERENUMAB
     Indication: Headache
     Dosage: UNK
     Route: 065
  2. ACETAZOLAMIDE [Concomitant]
     Active Substance: ACETAZOLAMIDE
     Indication: Headache
     Dosage: 500 MILLIGRAM, BID, 125 TO 250 MG
  3. GABAPENTIN [Concomitant]
     Active Substance: GABAPENTIN
     Indication: Headache
  4. TOPIRAMATE [Concomitant]
     Active Substance: TOPIRAMATE
     Indication: Headache
  5. BACLOFEN [Concomitant]
     Active Substance: BACLOFEN
     Indication: Headache
  6. AMITRIPTYLINE [Concomitant]
     Active Substance: AMITRIPTYLINE
     Indication: Headache
  7. ONABOTULINUMTOXINA [Concomitant]
     Active Substance: ONABOTULINUMTOXINA
     Indication: Headache
  8. SPIRONOLACTONE [Concomitant]
     Active Substance: SPIRONOLACTONE
     Indication: Headache

REACTIONS (1)
  - Treatment failure [Unknown]
